FAERS Safety Report 5369565-X (Version None)
Quarter: 2007Q2

REPORT INFORMATION
  Report Type: 
  Country: None (occurrence: None)
  Receive Date: 20070621
  Receipt Date: 20070530
  Transmission Date: 20071010
  Serious: Yes (Hospitalization)
  Sender: FDA-Public Use
  Company Number: 070403296

PATIENT
  Age: 56 Year
  Sex: Female
  Weight: 61.2356 kg

DRUGS (3)
  1. MUCINEX D [Suspect]
     Indication: SINUS CONGESTION
     Dosage: 1TABL, EVERY 12 HOURS, ORAL
     Route: 048
     Dates: start: 20070405, end: 20070406
  2. DELSYM [Suspect]
     Indication: DRUG USE FOR UNKNOWN INDICATION
     Dosage: ORAL
     Route: 048
  3. NONE (NONE) [Concomitant]

REACTIONS (10)
  - AMNESIA [None]
  - ASTHENIA [None]
  - CLONUS [None]
  - DYSARTHRIA [None]
  - DYSKINESIA [None]
  - DYSTONIA [None]
  - GAIT DISTURBANCE [None]
  - HEMIPARESIS [None]
  - MUSCLE SPASMS [None]
  - TREMOR [None]
